FAERS Safety Report 23208242 (Version 2)
Quarter: 2023Q4

REPORT INFORMATION
  Report Type: Spontaneous
  Country: JP (occurrence: JP)
  Receive Date: 20231121
  Receipt Date: 20231221
  Transmission Date: 20240109
  Serious: Yes (Hospitalization, Other)
  Sender: FDA-Public Use
  Company Number: JP-CHUGAI-2023040486

PATIENT
  Age: 7 Decade
  Sex: Male

DRUGS (2)
  1. ACTEMRA [Suspect]
     Active Substance: TOCILIZUMAB
     Indication: Rheumatoid arthritis
     Dosage: UNK, SINGLE
     Route: 065
     Dates: start: 20230714, end: 20230714
  2. ACTEMRA [Suspect]
     Active Substance: TOCILIZUMAB
     Dosage: UNK, SINGLE
     Route: 065
     Dates: start: 20230904, end: 20230904

REACTIONS (4)
  - Cytokine storm [Recovering/Resolving]
  - Interstitial lung disease [Recovering/Resolving]
  - Interleukin level increased [Recovering/Resolving]
  - Treatment noncompliance [Unknown]

NARRATIVE: CASE EVENT DATE: 20230801
